FAERS Safety Report 4385158-5 (Version None)
Quarter: 2004Q2

REPORT INFORMATION
  Report Type: 
  Country: None (occurrence: None)
  Receive Date: 20040607
  Receipt Date: 20030724
  Transmission Date: 20050107
  Serious: Yes (Other)
  Sender: FDA-Public Use
  Company Number: 343183

PATIENT
  Age: 5 Year

DRUGS (1)
  1. ACCUTANE [Suspect]
     Dates: end: 19970715

REACTIONS (3)
  - NO ADVERSE DRUG EFFECT [None]
  - NORMAL NEWBORN [None]
  - PREGNANCY [None]
